FAERS Safety Report 11784439 (Version 5)
Quarter: 2016Q3

REPORT INFORMATION
  Report Type: Report from Study
  Country: AU (occurrence: AU)
  Receive Date: 20151129
  Receipt Date: 20160714
  Transmission Date: 20161109
  Serious: Yes (Other)
  Sender: FDA-Public Use
  Company Number: AU-ROCHE-1669009

PATIENT
  Age: 66 Year
  Sex: Male

DRUGS (10)
  1. ACTEMRA [Suspect]
     Active Substance: TOCILIZUMAB
     Indication: RHEUMATOID ARTHRITIS
     Route: 042
     Dates: start: 20111010, end: 20160108
  2. ESCITALOPRAM [Concomitant]
     Active Substance: ESCITALOPRAM OXALATE
     Dosage: IN MORNING
     Route: 065
  3. ENDONE [Concomitant]
     Active Substance: OXYCODONE HYDROCHLORIDE
     Route: 065
  4. PREDNISOLONE. [Concomitant]
     Active Substance: PREDNISOLONE
     Route: 065
  5. METHOTREXATE. [Concomitant]
     Active Substance: METHOTREXATE
     Indication: RHEUMATOID ARTHRITIS
     Dosage: ONGOING
     Route: 048
  6. OXYCONTIN [Concomitant]
     Active Substance: OXYCODONE HYDROCHLORIDE
     Dosage: SLOW RELEASE TABLET
     Route: 065
  7. PREDNISONE. [Concomitant]
     Active Substance: PREDNISONE
     Indication: RHEUMATOID ARTHRITIS
     Route: 048
  8. RENITEC [Concomitant]
     Active Substance: ENALAPRIL MALEATE
     Dosage: DAILY
     Route: 065
  9. ACLASTA [Concomitant]
     Active Substance: ZOLEDRONIC ACID
     Dosage: YEARLY DUE IN OCT
     Route: 065
  10. PHYSIOTENS [Concomitant]
     Active Substance: MOXONIDINE
     Dosage: IN EVEENING
     Route: 065

REACTIONS (6)
  - Skin ulcer [Recovered/Resolved]
  - Pain [Unknown]
  - Benign prostatic hyperplasia [Unknown]
  - Lymphoedema [Unknown]
  - Addison^s disease [Unknown]
  - Gastroenteritis [Unknown]

NARRATIVE: CASE EVENT DATE: 2012
